FAERS Safety Report 8971207 (Version 1)
Quarter: 2012Q4

REPORT INFORMATION
  Report Type: Report from Study
  Country: ID (occurrence: ID)
  Receive Date: 20121218
  Receipt Date: 20121218
  Transmission Date: 20130627
  Serious: Yes (Hospitalization)
  Sender: FDA-Public Use
  Company Number: ID-ROCHE-1100313

PATIENT
  Age: 57 Year
  Sex: Female
  Weight: 90 kg

DRUGS (5)
  1. ORLISTAT [Suspect]
     Indication: OBESITY
     Route: 048
     Dates: start: 20120710, end: 20120725
  2. ALLOPURINOL [Suspect]
     Indication: HYPERURICAEMIA
     Route: 065
  3. BIOCAL [Concomitant]
     Indication: OSTEOARTHRITIS
     Route: 048
  4. VITAMIN B1 [Concomitant]
     Route: 048
  5. MELOXICAM [Concomitant]
     Indication: OSTEOARTHRITIS
     Route: 048

REACTIONS (3)
  - Pruritus [Recovered/Resolved]
  - Blister [Recovered/Resolved]
  - Pruritus generalised [Unknown]
